FAERS Safety Report 7538983-3 (Version None)
Quarter: 2011Q2

REPORT INFORMATION
  Report Type: 
  Country: None (occurrence: None)
  Receive Date: 20110610
  Receipt Date: 20110120
  Transmission Date: 20111010
  Serious: Yes (Hospitalization)
  Sender: FDA-Public Use
  Company Number: US-BAYER-201038174NA

PATIENT
  Sex: Female
  Weight: 68 kg

DRUGS (5)
  1. NAPROXEN (ALEVE) [Concomitant]
     Indication: HEADACHE
     Dosage: UNK
     Dates: start: 20030101
  2. ADVIL LIQUI-GELS [Concomitant]
     Indication: HEADACHE
     Dosage: UNK
     Dates: start: 20030101
  3. IBUPROFEN [Concomitant]
     Indication: HEADACHE
     Dosage: UNK
     Dates: start: 20030101
  4. YASMIN [Suspect]
     Indication: ACNE
     Route: 048
  5. IMITREX [Concomitant]
     Indication: MIGRAINE

REACTIONS (6)
  - DEPRESSION [None]
  - ANXIETY [None]
  - DYSPNOEA [None]
  - PULMONARY EMBOLISM [None]
  - PULMONARY INFARCTION [None]
  - CHEST PAIN [None]
